FAERS Safety Report 14946079 (Version 1)
Quarter: 2018Q2

REPORT INFORMATION
  Report Type: Spontaneous
  Country: FR (occurrence: FR)
  Receive Date: 20180529
  Receipt Date: 20180529
  Transmission Date: 20180711
  Serious: Yes (Hospitalization)
  Sender: FDA-Public Use
  Company Number: FR-TEVA-2018-FR-896900

PATIENT
  Age: 88 Year
  Sex: Female

DRUGS (8)
  1. IBUPROFENE [Suspect]
     Active Substance: IBUPROFEN
     Indication: BACK PAIN
     Dosage: 600 MILLIGRAM DAILY;
     Route: 048
     Dates: start: 20171219, end: 20171228
  2. KALEORID LP 600 MG, COMPRIM? ? LIB?RATION PROLONG?E [Concomitant]
     Dosage: 600 MILLIGRAM DAILY;
     Route: 048
  3. EUPANTOL 40 MG, COMPRIM? GASTRO-R?SISTANT [Concomitant]
     Dosage: 40 MILLIGRAM DAILY;
     Route: 048
  4. INEXIUM 20 MG, COMPRIM? GASTRO-R?SISTANT [Concomitant]
     Active Substance: ESOMEPRAZOLE MAGNESIUM
     Dosage: 20 MILLIGRAM DAILY;
     Route: 048
  5. FUROSEMIDE. [Concomitant]
     Active Substance: FUROSEMIDE
     Dosage: 80 MILLIGRAM DAILY;
     Route: 048
  6. PREVISCAN 20 MG, COMPRIM? S?CABLE [Concomitant]
     Active Substance: FLUINDIONE
     Dosage: 10 MILLIGRAM DAILY;
     Route: 048
  7. SPECIAFOLDINE 5 MG, COMPRIM? [Concomitant]
     Active Substance: FOLIC ACID
     Dosage: 10 MILLIGRAM DAILY;
     Route: 048
  8. AMIODARONE (CHLORHYDRATE D^) [Concomitant]
     Dosage: 200 MILLIGRAM DAILY;
     Route: 048

REACTIONS (1)
  - Acute kidney injury [Recovered/Resolved]

NARRATIVE: CASE EVENT DATE: 20171228
